FAERS Safety Report 26112264 (Version 1)
Quarter: 2025Q4

REPORT INFORMATION
  Report Type: Spontaneous
  Country: US (occurrence: None)
  Receive Date: 20251201
  Receipt Date: 20251201
  Transmission Date: 20260118
  Serious: Yes (Other)
  Sender: FDA-CTU
  Company Number: None

PATIENT
  Age: 23 Year
  Sex: Female
  Weight: 139.5 kg

DRUGS (7)
  1. SPRAVATO [Suspect]
     Active Substance: ESKETAMINE
     Indication: Depression
     Dosage: OTHER QUANTITY : 3 SPRAY(S);?OTHER FREQUENCY : ONCE A WEEK;?
     Route: 055
  2. SEROQUEL [Concomitant]
     Active Substance: QUETIAPINE FUMARATE
  3. DEPAKOTE [Concomitant]
     Active Substance: DIVALPROEX SODIUM
  4. LITHIUM [Concomitant]
     Active Substance: LITHIUM
  5. WELLBUTRIN [Concomitant]
     Active Substance: BUPROPION HYDROCHLORIDE
  6. FOLIC ACID [Concomitant]
     Active Substance: FOLIC ACID
  7. MAGNESIUM GLUTAMATE [Concomitant]
     Active Substance: MAGNESIUM GLUTAMATE

REACTIONS (6)
  - Treatment noncompliance [None]
  - Product supply issue [None]
  - Syncope [None]
  - Drug monitoring procedure not performed [None]
  - Victim of abuse [None]
  - Intentional dose omission [None]

NARRATIVE: CASE EVENT DATE: 20251201
